FAERS Safety Report 13618223 (Version 1)
Quarter: 2017Q2

REPORT INFORMATION
  Report Type: Spontaneous
  Country: FR (occurrence: FR)
  Receive Date: 20170606
  Receipt Date: 20170606
  Transmission Date: 20170830
  Serious: No
  Sender: FDA-Public Use
  Company Number: FR-SA-2017SA097669

PATIENT
  Age: 29 Year
  Sex: Female

DRUGS (2)
  1. ARAVA [Suspect]
     Active Substance: LEFLUNOMIDE
     Indication: POLYARTHRITIS
     Route: 048
     Dates: start: 201611, end: 20170222
  2. ARAVA [Suspect]
     Active Substance: LEFLUNOMIDE
     Indication: POLYARTHRITIS
     Route: 048
     Dates: start: 20170222, end: 20170515

REACTIONS (1)
  - Exposure during pregnancy [Unknown]
